FAERS Safety Report 6556930-8 (Version None)
Quarter: 2010Q1

REPORT INFORMATION
  Report Type: 
  Country: None (occurrence: None)
  Receive Date: 20100128
  Receipt Date: 20100118
  Transmission Date: 20100710
  Serious: Yes (Hospitalization)
  Sender: FDA-Public Use
  Company Number: FR-AMGEN-US372750

PATIENT
  Sex: Male
  Weight: 68 kg

DRUGS (7)
  1. ENBREL [Suspect]
     Indication: ANKYLOSING SPONDYLITIS
     Route: 058
     Dates: start: 20061001, end: 20091001
  2. CORTANCYL [Concomitant]
     Route: 048
  3. ESIDRIX [Concomitant]
     Route: 048
  4. PLAVIX [Concomitant]
     Route: 048
  5. ZOLOFT [Concomitant]
     Route: 048
  6. CARDENSIEL [Concomitant]
     Route: 048
  7. IPERTEN [Concomitant]
     Route: 048

REACTIONS (8)
  - AORTIC VALVE STENOSIS [None]
  - ATRIAL FIBRILLATION [None]
  - CARDIAC FAILURE [None]
  - CONDITION AGGRAVATED [None]
  - MITRAL VALVE INCOMPETENCE [None]
  - PULMONARY ARTERIAL HYPERTENSION [None]
  - RENAL FAILURE CHRONIC [None]
  - VENTRICULAR EXTRASYSTOLES [None]
